FAERS Safety Report 10815319 (Version 1)
Quarter: 2015Q1

REPORT INFORMATION
  Report Type: Spontaneous
  Country: US (occurrence: US)
  Receive Date: 20150218
  Receipt Date: 20150218
  Transmission Date: 20150721
  Serious: No
  Sender: FDA-Public Use
  Company Number: US-TEVA-540782USA

PATIENT
  Age: 55 Year
  Sex: Male
  Weight: 120.31 kg

DRUGS (1)
  1. COPAXONE [Suspect]
     Active Substance: GLATIRAMER ACETATE
     Indication: RELAPSING-REMITTING MULTIPLE SCLEROSIS
     Dates: start: 20150123

REACTIONS (7)
  - Insomnia [Unknown]
  - Myalgia [Unknown]
  - Tremor [Unknown]
  - Headache [Unknown]
  - Feeling abnormal [Unknown]
  - Chills [Unknown]
  - Inappropriate schedule of drug administration [Unknown]

NARRATIVE: CASE EVENT DATE: 20150128
